FAERS Safety Report 16760486 (Version 3)
Quarter: 2019Q4

REPORT INFORMATION
  Report Type: Report from Study
  Country: AU (occurrence: AU)
  Receive Date: 20190830
  Receipt Date: 20191002
  Transmission Date: 20200122
  Serious: Yes (Hospitalization)
  Sender: FDA-Public Use
  Company Number: PHHO2019AU008503

PATIENT
  Age: 41 Year
  Sex: Female
  Weight: 68.1 kg

DRUGS (6)
  1. LOVATADIN [Concomitant]
     Indication: SEASONAL ALLERGY
     Dosage: 10 MG (PER DAY)
     Route: 065
     Dates: start: 201907
  2. BYL719 [Suspect]
     Active Substance: ALPELISIB
     Indication: BREAST CANCER
     Dosage: 350 MG (PER DAY)
     Route: 048
     Dates: start: 20190807, end: 20190820
  3. BYL719 [Suspect]
     Active Substance: ALPELISIB
     Dosage: 350 MG (PER DAY)
     Route: 048
     Dates: start: 20190821
  4. PREDNISOLONE. [Concomitant]
     Active Substance: PREDNISOLONE
     Indication: RASH
     Dosage: 25 MG (PER DAY)
     Route: 065
     Dates: start: 20190817
  5. RESTAVIT [Concomitant]
     Active Substance: DOXYLAMINE SUCCINATE
     Indication: INSOMNIA
     Dosage: 1 DF (PER DAY)
     Route: 065
     Dates: start: 201903
  6. SYMBICORT [Concomitant]
     Active Substance: BUDESONIDE\FORMOTEROL FUMARATE DIHYDRATE
     Indication: SEASONAL ALLERGY
     Dosage: 1 DF, PRN
     Route: 065
     Dates: start: 201907

REACTIONS (2)
  - Dyspnoea [Recovered/Resolved]
  - Pyrexia [Recovered/Resolved]

NARRATIVE: CASE EVENT DATE: 20190820
